FAERS Safety Report 4576461-4 (Version None)
Quarter: 2005Q1

REPORT INFORMATION
  Report Type: 
  Country: None (occurrence: None)
  Receive Date: 20050207
  Receipt Date: 20050124
  Transmission Date: 20050727
  Serious: Yes (Life-Threatening, Other)
  Sender: FDA-Public Use
  Company Number: 2004093237

PATIENT
  Age: 47 Year
  Sex: Female

DRUGS (2)
  1. BEXTRA [Suspect]
     Indication: BACK PAIN
     Dosage: 10 MG (10 MG, 1 IN 1 D), ORAL
     Route: 048
     Dates: start: 20040610, end: 20040618
  2. ESOMEPRAZOLE [Concomitant]

REACTIONS (3)
  - HYPERHIDROSIS [None]
  - STEVENS-JOHNSON SYNDROME [None]
  - URTICARIA [None]
